FAERS Safety Report 9812139 (Version 5)
Quarter: 2014Q4

REPORT INFORMATION
  Report Type: Report from Study
  Country: DE (occurrence: DE)
  Receive Date: 20140111
  Receipt Date: 20141024
  Transmission Date: 20150529
  Serious: Yes (Hospitalization)
  Sender: FDA-Public Use
  Company Number: DE-ROCHE-1277774

PATIENT
  Age: 61 Year
  Sex: Male
  Weight: 76 kg

DRUGS (23)
  1. BEVACIZUMAB [Suspect]
     Active Substance: BEVACIZUMAB
     Indication: RECTAL CANCER
  2. 5-FLUOROURACIL [Suspect]
     Active Substance: FLUOROURACIL
     Indication: COLON CANCER
     Route: 040
     Dates: start: 20130819, end: 20130903
  3. CLEXANE [Concomitant]
     Active Substance: ENOXAPARIN SODIUM
     Route: 058
     Dates: start: 20140218, end: 20140303
  4. DOLO-DOBENDAN [Concomitant]
     Indication: OROPHARYNGEAL PAIN
     Route: 048
     Dates: start: 20130919, end: 20130919
  5. FOLINIC ACID [Concomitant]
     Active Substance: LEUCOVORIN
     Indication: COLON CANCER
     Route: 065
     Dates: start: 20130819, end: 20130903
  6. BEVACIZUMAB [Suspect]
     Active Substance: BEVACIZUMAB
     Indication: COLON CANCER
  7. PODOMEXEF [Concomitant]
     Active Substance: CEFPODOXIME PROXETIL
     Indication: INFECTION
  8. NOVAMINSULFON [Concomitant]
     Active Substance: METAMIZOLE
     Indication: PAIN
     Dosage: AS REQUIRED
     Route: 048
     Dates: start: 20130920, end: 20130920
  9. 5-FLUOROURACIL [Suspect]
     Active Substance: FLUOROURACIL
     Indication: COLON CANCER
     Route: 041
     Dates: start: 20130819, end: 20130902
  10. PANTOZOL [Concomitant]
     Active Substance: PANTOPRAZOLE SODIUM
     Route: 065
     Dates: start: 20130902, end: 20131215
  11. CLEXANE [Concomitant]
     Active Substance: ENOXAPARIN SODIUM
     Route: 065
     Dates: start: 20131224, end: 20131230
  12. REMESTAN [Concomitant]
     Indication: SLEEP DISORDER
     Dosage: AS REQUIRED.
     Route: 048
     Dates: start: 20130917, end: 20130918
  13. NOVAMINSULFON [Concomitant]
     Active Substance: METAMIZOLE
     Route: 048
     Dates: start: 20131227
  14. PODOMEXEF [Concomitant]
     Active Substance: CEFPODOXIME PROXETIL
     Indication: PYREXIA
     Route: 065
     Dates: start: 20130920, end: 20130925
  15. BEPANTHEN [Concomitant]
     Active Substance: DEXPANTHENOL
     Indication: OROPHARYNGEAL PAIN
     Route: 048
     Dates: start: 20130919, end: 20130919
  16. METOCLOPRAMIDE. [Concomitant]
     Active Substance: METOCLOPRAMIDE
     Indication: NAUSEA
     Dosage: AS REQUIRED
     Route: 065
     Dates: start: 20130912, end: 20131215
  17. IRINOTECAN [Suspect]
     Active Substance: IRINOTECAN
     Indication: COLON CANCER
  18. MACROGOL [Concomitant]
     Active Substance: POLYETHYLENE GLYCOLS
     Indication: CONSTIPATION
     Route: 065
     Dates: start: 20130902, end: 20131215
  19. BEVACIZUMAB [Suspect]
     Active Substance: BEVACIZUMAB
     Indication: COLON CANCER
     Route: 042
     Dates: start: 20130819, end: 20130902
  20. IRINOTECAN [Suspect]
     Active Substance: IRINOTECAN
     Indication: COLON CANCER
     Route: 042
     Dates: start: 20130819, end: 20130902
  21. CLEXANE [Concomitant]
     Active Substance: ENOXAPARIN SODIUM
     Indication: THROMBOSIS PROPHYLAXIS
     Route: 058
     Dates: start: 20130917, end: 20130920
  22. NOVAMINSULFON [Concomitant]
     Active Substance: METAMIZOLE
     Dosage: AS REQUIRED
     Route: 048
     Dates: start: 20140218
  23. PROPOFOL. [Concomitant]
     Active Substance: PROPOFOL
     Indication: ANAESTHESIA
     Route: 065
     Dates: start: 20130919, end: 20130919

REACTIONS (5)
  - Pneumobilia [Recovered/Resolved]
  - Abdominal pain [Recovered/Resolved]
  - Abdominal pain [Recovered/Resolved]
  - Gastritis [Recovered/Resolved]
  - Bile duct stenosis [Recovered/Resolved]

NARRATIVE: CASE EVENT DATE: 20130913
